FAERS Safety Report 6761939-5 (Version None)
Quarter: 2010Q2

REPORT INFORMATION
  Report Type: 
  Country: None (occurrence: None)
  Receive Date: 20100607
  Receipt Date: 20100524
  Transmission Date: 20101027
  Serious: Yes (Other)
  Sender: FDA-Public Use
  Company Number: 2010AP001033

PATIENT
  Age: 42 Year
  Sex: Male

DRUGS (9)
  1. CLONAZEPAM [Suspect]
     Indication: STRESS
     Dosage: 12 MG; QD
  2. VALPROIC ACID [Concomitant]
  3. DEXAMETHASONE [Concomitant]
  4. NARATRIPTAN [Concomitant]
  5. BUTALBITAL [Concomitant]
  6. HYDROCODONE BITARTRATE [Concomitant]
  7. DIAZEPAM [Concomitant]
  8. PROPRANOLOL [Concomitant]
  9. NORTRIPTYLINE [Concomitant]

REACTIONS (8)
  - AGITATION [None]
  - ANXIETY [None]
  - BIPOLAR DISORDER [None]
  - DRUG ABUSE [None]
  - HALLUCINATION, AUDITORY [None]
  - INSOMNIA [None]
  - IRRITABILITY [None]
  - SOMATOFORM DISORDER [None]
